FAERS Safety Report 24119311 (Version 1)
Quarter: 2024Q3

REPORT INFORMATION
  Report Type: Spontaneous
  Country: TR (occurrence: TR)
  Receive Date: 20240722
  Receipt Date: 20240722
  Transmission Date: 20241016
  Serious: Yes (Other)
  Sender: MSN LABORATORIES
  Company Number: TR-MSNLABS-2024MSNLIT01598

PATIENT

DRUGS (1)
  1. PACLITAXEL [Suspect]
     Active Substance: PACLITAXEL
     Indication: Non-small cell lung cancer
     Dosage: 2ND CYCLE
     Route: 065

REACTIONS (8)
  - Bronchospasm [Unknown]
  - Cyanosis [Unknown]
  - Oxygen saturation decreased [Unknown]
  - Type I hypersensitivity [Unknown]
  - Dizziness [Unknown]
  - Erythema [Unknown]
  - Dyspnoea [Unknown]
  - Confusional state [Unknown]
